FAERS Safety Report 7286161-8 (Version None)
Quarter: 2011Q1

REPORT INFORMATION
  Report Type: 
  Country: None (occurrence: None)
  Receive Date: 20110210
  Receipt Date: 20101116
  Transmission Date: 20110831
  Serious: No
  Sender: FDA-Public Use
  Company Number: US-BAYER-2010-005449

PATIENT
  Sex: Female
  Weight: 58.957 kg

DRUGS (7)
  1. ALEVE (CAPLET) [Suspect]
     Indication: ARTHRALGIA
     Dosage: UNK
  2. CARDIOVASCULAR SYSTEM DRUGS [Concomitant]
  3. ALEVE (CAPLET) [Suspect]
     Indication: PAIN IN EXTREMITY
     Dosage: BOTTLE COUNT 130CT
     Dates: start: 20100901
  4. ASPIRIN [Concomitant]
     Dosage: 325 MG, UNK
  5. ANTI-DIABETICS [Concomitant]
  6. ALEVE (CAPLET) [Suspect]
     Dosage: DAILY DOSE 2200 MG
     Dates: start: 20100901
  7. ANTIDEPRESSANTS [Concomitant]

REACTIONS (2)
  - ARTHRALGIA [None]
  - PAIN IN EXTREMITY [None]
